FAERS Safety Report 4662524-1 (Version None)
Quarter: 2005Q2

REPORT INFORMATION
  Report Type: 
  Country: None (occurrence: None)
  Receive Date: 20050512
  Receipt Date: 20050426
  Transmission Date: 20051028
  Serious: Yes (Death, Hospitalization)
  Sender: FDA-Public Use
  Company Number: MAG-2005-0000348

PATIENT
  Age: 44 Year
  Sex: Female

DRUGS (25)
  1. OXYCODONE HCL [Suspect]
     Indication: CANCER PAIN
     Dosage: SEE IMAGE
     Route: 048
     Dates: start: 20050225, end: 20050226
  2. OXYCODONE HCL [Suspect]
     Indication: CANCER PAIN
     Dosage: SEE IMAGE
     Route: 048
     Dates: start: 20050227, end: 20050403
  3. OXYCODONE HCL [Suspect]
     Indication: CANCER PAIN
     Dosage: SEE IMAGE
     Route: 048
     Dates: start: 20050225, end: 20050226
  4. OXYCODONE HCL [Suspect]
     Indication: CANCER PAIN
     Dosage: SEE IMAGE
     Route: 048
     Dates: start: 20050225, end: 20050404
  5. DEPAS (ETIZOLAM) [Concomitant]
  6. BROCIN (WILD CHERRY BARK) [Concomitant]
  7. DEXAMETHASONE [Concomitant]
  8. ZANTAC [Concomitant]
  9. LOXONIN (LOXOPROFEN SODIUM) [Concomitant]
  10. SALICYLIC ACID (SALICYLIC ACID) [Concomitant]
  11. MAG-LAX (PARAFIN, LIQUID, MAGNESIUM HYDROXIDE) [Concomitant]
  12. FLAVERIC (BENPROPERINE PHOSPHATE) [Concomitant]
  13. KENALOG [Concomitant]
  14. CATLEP [Concomitant]
  15. XYLOCAINE [Concomitant]
  16. MAZULENIN G [Concomitant]
  17. CODEINE PHOSPHATE [Concomitant]
  18. HEPARIN SODIUM [Concomitant]
  19. ELASE (DEOXYRIBONUCLEASE, BOVINE, FIBRINOLYSIN) [Concomitant]
  20. VITAMEDIN S (PYRIDOXINE HYDROCHLORIDE, THIAMINE HYDROCHLORIDE, HYDROXY [Concomitant]
  21. GLUCOSE (GLUCOSE) [Concomitant]
  22. SODIUM CHLORIDE 0.9% [Concomitant]
  23. FAMOTIDINE [Concomitant]
  24. ISOTONIC SOLUTIONS [Concomitant]
  25. MORPHINE [Concomitant]

REACTIONS (6)
  - AFFECT LABILITY [None]
  - APHASIA [None]
  - EXCITABILITY [None]
  - HYPERVENTILATION [None]
  - LUNG NEOPLASM MALIGNANT [None]
  - MALIGNANT NEOPLASM PROGRESSION [None]
